FAERS Safety Report 7988801-4 (Version None)
Quarter: 2011Q4

REPORT INFORMATION
  Report Type: 
  Country: None (occurrence: None)
  Receive Date: 20111219
  Receipt Date: 20111215
  Transmission Date: 20120403
  Serious: No
  Sender: FDA-Public Use
  Company Number: US-BIOGENIDEC-2011BI047338

PATIENT
  Age: 62 Year
  Sex: Female

DRUGS (3)
  1. AVONEX [Suspect]
     Indication: MULTIPLE SCLEROSIS
     Route: 030
     Dates: start: 20111207, end: 20111207
  2. ACTONEL [Concomitant]
     Indication: OSTEOPOROSIS
     Dates: start: 20111101
  3. AVONEX [Suspect]
     Route: 030
     Dates: start: 20111214

REACTIONS (4)
  - ABDOMINAL DISCOMFORT [None]
  - MUSCULOSKELETAL STIFFNESS [None]
  - INFLUENZA LIKE ILLNESS [None]
  - FATIGUE [None]
